FAERS Safety Report 4919238-X (Version None)
Quarter: 2006Q1

REPORT INFORMATION
  Report Type: 
  Country: None (occurrence: None)
  Receive Date: 20060222
  Receipt Date: 20060214
  Transmission Date: 20060701
  Serious: Yes (Death)
  Sender: FDA-Public Use
  Company Number: US-ABBOTT-06P-163-0324972-00

PATIENT
  Sex: Female

DRUGS (6)
  1. SYNTHROID [Suspect]
     Indication: HYPOTHYROIDISM
     Route: 048
     Dates: start: 19990101, end: 20050904
  2. K-TAB [Suspect]
     Indication: ELECTROLYTE SUBSTITUTION THERAPY
     Route: 048
     Dates: start: 20020101, end: 20050904
  3. ARTHROTEC [Concomitant]
     Indication: ARTHRITIS
     Dates: end: 20050904
  4. CO-BETALOC [Concomitant]
     Indication: DRUG USE FOR UNKNOWN INDICATION
     Route: 048
     Dates: end: 20050904
  5. ANCOVERT [Concomitant]
     Indication: DIZZINESS
     Route: 048
  6. FLUVASTATIN SODIUM [Concomitant]
     Indication: BLOOD CHOLESTEROL
     Route: 048
     Dates: start: 20020101, end: 20050904

REACTIONS (1)
  - INTESTINAL GANGRENE [None]
